FAERS Safety Report 9679339 (Version 1)
Quarter: 2013Q4

REPORT INFORMATION
  Report Type: Spontaneous
  Country: US (occurrence: US)
  Receive Date: 20131109
  Receipt Date: 20131109
  Transmission Date: 20140711
  Serious: No
  Sender: FDA-Public Use
  Company Number: US-SANOFI-AVENTIS-2013SA004985

PATIENT
  Age: 34 Year
  Sex: Male

DRUGS (1)
  1. ALLEGRA-D, 24 HR [Suspect]
     Indication: HYPERSENSITIVITY
     Route: 048
     Dates: start: 201301, end: 20130121

REACTIONS (5)
  - Prostatic disorder [Not Recovered/Not Resolved]
  - Urinary incontinence [Not Recovered/Not Resolved]
  - Proctalgia [Not Recovered/Not Resolved]
  - Urine analysis abnormal [Not Recovered/Not Resolved]
  - Dyspareunia [Not Recovered/Not Resolved]
